FAERS Safety Report 12256409 (Version 1)
Quarter: 2016Q2

REPORT INFORMATION
  Report Type: Spontaneous
  Country: CA (occurrence: CA)
  Receive Date: 20160412
  Receipt Date: 20160412
  Transmission Date: 20160815
  Serious: Yes (Life-Threatening)
  Sender: FDA-Public Use
  Company Number: CA-BAYER-2016-063993

PATIENT
  Age: 35 Year
  Sex: Female
  Weight: 89.8 kg

DRUGS (1)
  1. GADOVIST [Suspect]
     Active Substance: GADOBUTROL
     Indication: PRODUCT USED FOR UNKNOWN INDICATION
     Dosage: 10 ML, UNK
     Route: 042

REACTIONS (5)
  - Dyspnoea [Unknown]
  - Erythema [Unknown]
  - Paraesthesia [Unknown]
  - Dysphagia [Unknown]
  - Throat irritation [Unknown]
